FAERS Safety Report 8802535 (Version 1)
Quarter: 2012Q4

REPORT INFORMATION
  Report Type: 
  Country: US (occurrence: US)
  Receive Date: 20120921
  Receipt Date: 20120921
  Transmission Date: 20130627
  Serious: No
  Sender: FDA-Public Use
  Company Number: US-009507513-1209USA006126

PATIENT
  Age: 87 Year
  Sex: Male

DRUGS (1)
  1. DULERA [Suspect]
     Indication: CHRONIC OBSTRUCTIVE PULMONARY DISEASE
     Dosage: 2 DF, bid, puffs
     Route: 055
     Dates: start: 201207

REACTIONS (1)
  - Blood pressure decreased [Not Recovered/Not Resolved]
